FAERS Safety Report 5489038-3 (Version None)
Quarter: 2007Q4

REPORT INFORMATION
  Report Type: 
  Country: None (occurrence: None)
  Receive Date: 20071018
  Receipt Date: 20071010
  Transmission Date: 20080405
  Serious: Yes (Other)
  Sender: FDA-Public Use
  Company Number: PHBS2007BR17172

PATIENT
  Age: 3 Year
  Sex: Male
  Weight: 16 kg

DRUGS (1)
  1. CATAFLAM [Suspect]
     Indication: PYREXIA
     Dosage: 16 DRP, 6QD
     Route: 048
     Dates: start: 20071007, end: 20071010

REACTIONS (2)
  - BRONCHITIS [None]
  - DRUG INEFFECTIVE [None]
